FAERS Safety Report 4744025-5 (Version None)
Quarter: 2005Q3

REPORT INFORMATION
  Report Type: 
  Country: None (occurrence: None)
  Receive Date: 20050801
  Receipt Date: 20050422
  Transmission Date: 20060218
  Serious: Yes (Hospitalization)
  Sender: FDA-Public Use
  Company Number: 211830

PATIENT
  Age: 64 Year
  Sex: Female

DRUGS (1)
  1. RITUXAN [Suspect]
     Indication: B-CELL LYMPHOMA
     Dosage: 375 MG/M2, X4, INTRAVENOUS
     Route: 042
     Dates: start: 20041001, end: 20050111

REACTIONS (2)
  - ARTHRALGIA [None]
  - RASH [None]
